FAERS Safety Report 5540832-X (Version None)
Quarter: 2007Q4

REPORT INFORMATION
  Report Type: 
  Country: None (occurrence: None)
  Receive Date: 20071129
  Receipt Date: 20070924
  Transmission Date: 20080405
  Serious: Yes (Other)
  Sender: FDA-Public Use
  Company Number: US200709005285

PATIENT

DRUGS (1)
  1. ZYPREXA [Suspect]

REACTIONS (5)
  - CARDIAC DISORDER [None]
  - DIABETES MELLITUS [None]
  - HYPERTENSION [None]
  - RENAL DISORDER [None]
  - VISUAL ACUITY REDUCED [None]
